FAERS Safety Report 17272460 (Version 1)
Quarter: 2020Q1

REPORT INFORMATION
  Report Type: Spontaneous
  Country: US (occurrence: US)
  Receive Date: 20200114
  Receipt Date: 20200114
  Transmission Date: 20200409
  Serious: Yes (Hospitalization)
  Sender: FDA-Public Use
  Company Number: None

PATIENT
  Sex: Female

DRUGS (17)
  1. LITHIUM. [Concomitant]
     Active Substance: LITHIUM
  2. RANITIDINE. [Concomitant]
     Active Substance: RANITIDINE
  3. ATORVASTATIN [Concomitant]
     Active Substance: ATORVASTATIN
  4. ELIQUIS [Concomitant]
     Active Substance: APIXABAN
  5. ESZOPICLONE. [Concomitant]
     Active Substance: ESZOPICLONE
  6. TADALAFIL. [Concomitant]
     Active Substance: TADALAFIL
  7. MYRBETRIQ [Concomitant]
     Active Substance: MIRABEGRON
  8. MIRTAZAPINE. [Concomitant]
     Active Substance: MIRTAZAPINE
  9. ESOMEPRA [Concomitant]
     Active Substance: ESOMEPRAZOLE
  10. DILTIAZEM. [Concomitant]
     Active Substance: DILTIAZEM
  11. OXYBUTYNIN. [Concomitant]
     Active Substance: OXYBUTYNIN CHLORIDE
  12. AMBRISENTAN [Suspect]
     Active Substance: AMBRISENTAN
     Indication: PULMONARY ARTERIAL HYPERTENSION
     Route: 048
     Dates: start: 20191002
  13. BUPROPION. [Concomitant]
     Active Substance: BUPROPION
  14. METOPROLOL TARTRATE. [Concomitant]
     Active Substance: METOPROLOL TARTRATE
  15. IRBESARTAN. [Concomitant]
     Active Substance: IRBESARTAN
  16. OLANZAPINE. [Concomitant]
     Active Substance: OLANZAPINE
  17. PILOCARPINE. [Concomitant]
     Active Substance: PILOCARPINE

REACTIONS (1)
  - Pulmonary arterial hypertension [None]
